FAERS Safety Report 22058859 (Version 1)
Quarter: 2023Q1

REPORT INFORMATION
  Report Type: Spontaneous
  Country: US (occurrence: None)
  Receive Date: 20230303
  Receipt Date: 20230303
  Transmission Date: 20230417
  Serious: Yes (Hospitalization)
  Sender: FDA-Public Use
  Company Number: 2023A047906

PATIENT
  Age: 58 Year
  Sex: Female
  Weight: 153.5 kg

DRUGS (2)
  1. XIGDUO XR [Suspect]
     Active Substance: DAPAGLIFLOZIN PROPANEDIOL\METFORMIN HYDROCHLORIDE
     Indication: Diabetes mellitus
     Dosage: 5MG/ML DAILY
     Route: 048
     Dates: start: 20230130, end: 20230213
  2. OZEMPIC [Concomitant]
     Active Substance: SEMAGLUTIDE

REACTIONS (1)
  - Fungaemia [Recovered/Resolved]

NARRATIVE: CASE EVENT DATE: 20230213
